FAERS Safety Report 9787180 (Version 1)
Quarter: 2013Q4

REPORT INFORMATION
  Report Type: Spontaneous
  Country: SE (occurrence: SE)
  Receive Date: 20131229
  Receipt Date: 20131229
  Transmission Date: 20140711
  Serious: Yes (Hospitalization)
  Sender: FDA-Public Use
  Company Number: SE-009507513-1312SWE008606

PATIENT
  Age: 15 Year
  Sex: Female

DRUGS (1)
  1. NEXPLANON [Suspect]
     Dosage: UNK UNK, CYCLICAL
     Route: 059
     Dates: start: 20130718, end: 20131112

REACTIONS (2)
  - Skin lesion [Unknown]
  - Furuncle [Unknown]
